FAERS Safety Report 19928092 (Version 1)
Quarter: 2021Q4

REPORT INFORMATION
  Report Type: Spontaneous
  Country: US (occurrence: US)
  Receive Date: 20211006
  Receipt Date: 20211006
  Transmission Date: 20220303
  Serious: Yes (Life-Threatening, Hospitalization)
  Sender: FDA-Public Use
  Company Number: None

PATIENT
  Age: 50 Year
  Sex: Male
  Weight: 93.4 kg

DRUGS (22)
  1. ACTEMRA [Suspect]
     Active Substance: TOCILIZUMAB
     Indication: COVID-19
     Dosage: ?          OTHER FREQUENCY:ONCE;
     Route: 042
     Dates: start: 20210924, end: 20210924
  2. ALBUTEROL\IPRATROPIUM [Concomitant]
     Active Substance: ALBUTEROL\IPRATROPIUM
     Dates: start: 20211005
  3. ALBUTEROL [Concomitant]
     Active Substance: ALBUTEROL
     Dates: start: 20210923, end: 20211005
  4. AMIODARONE [Concomitant]
     Active Substance: AMIODARONE
     Dates: start: 20210928, end: 20210929
  5. ASCORBIC ACID [Concomitant]
     Active Substance: ASCORBIC ACID
     Dates: start: 20210929, end: 20211005
  6. AZITHROMYCIN ANHYDROUS [Concomitant]
     Active Substance: AZITHROMYCIN ANHYDROUS
     Dates: start: 20210926, end: 20210929
  7. BENZONATATE [Concomitant]
     Active Substance: BENZONATATE
     Dates: start: 20210924, end: 20210930
  8. CEFEPIME [Concomitant]
     Active Substance: CEFEPIME HYDROCHLORIDE
     Dates: start: 20210923, end: 20210923
  9. CEFTRIAXONE [Concomitant]
     Active Substance: CEFTRIAXONE
     Dates: start: 20210923, end: 20211005
  10. DEXAMETHASONE [Concomitant]
     Active Substance: DEXAMETHASONE
     Dates: start: 20210923, end: 20210924
  11. DILTIAZEM [Concomitant]
     Active Substance: DILTIAZEM
     Dates: start: 20210928, end: 20210928
  12. DOXYCYCLINE [Concomitant]
     Active Substance: DOXYCYCLINE
     Dates: start: 20211001, end: 20211006
  13. ENOXAPARIN [Concomitant]
     Active Substance: ENOXAPARIN
     Dates: start: 20210924, end: 20210929
  14. HEPARIN [Concomitant]
     Active Substance: HEPARIN SODIUM
     Dates: start: 20210929
  15. HYDRALAZINE [Concomitant]
     Active Substance: HYDRALAZINE HYDROCHLORIDE
     Dates: start: 20210927
  16. METHYLPREDNISOLONE [Concomitant]
     Active Substance: METHYLPREDNISOLONE
     Dates: start: 20210924
  17. METOPROLOL [Concomitant]
     Active Substance: METOPROLOL
     Dates: start: 20210928
  18. MIDAZOLAM [Concomitant]
     Active Substance: MIDAZOLAM
     Dates: start: 20211005
  19. ONDANSETRON [Concomitant]
     Active Substance: ONDANSETRON
     Dates: start: 20210923
  20. PANTOPRAZOLE [Concomitant]
     Active Substance: PANTOPRAZOLE
     Dates: start: 20210925
  21. PROPOFOL [Concomitant]
     Active Substance: PROPOFOL
     Dates: start: 20211005
  22. SODIUM ACETATE [Concomitant]
     Active Substance: SODIUM ACETATE
     Dates: start: 20210930

REACTIONS (7)
  - Aspartate aminotransferase increased [None]
  - Alanine aminotransferase increased [None]
  - Hepatic steatosis [None]
  - Anxiety [None]
  - Dyspnoea [None]
  - Oxygen saturation decreased [None]
  - Procedural complication [None]

NARRATIVE: CASE EVENT DATE: 20211003
